FAERS Safety Report 14293107 (Version 1)
Quarter: 2017Q4

REPORT INFORMATION
  Report Type: Report from Study
  Country: None (occurrence: BR)
  Receive Date: 20171215
  Receipt Date: 20171215
  Transmission Date: 20180321
  Serious: Yes (Death, Hospitalization)
  Sender: FDA-Public Use
  Company Number: BR-ABBVIE-17P-020-2126366-00

PATIENT
  Age: 60 Year
  Sex: Female

DRUGS (5)
  1. VENETOCLAX. [Suspect]
     Active Substance: VENETOCLAX
     Route: 048
     Dates: start: 20170901, end: 20170909
  2. VENETOCLAX. [Suspect]
     Active Substance: VENETOCLAX
     Route: 048
     Dates: start: 20170910, end: 20170914
  3. VENETOCLAX. [Suspect]
     Active Substance: VENETOCLAX
     Route: 048
     Dates: start: 20170915, end: 20170929
  4. VENETOCLAX. [Suspect]
     Active Substance: VENETOCLAX
     Route: 048
     Dates: start: 20170928, end: 20171001
  5. VENETOCLAX. [Suspect]
     Active Substance: VENETOCLAX
     Indication: NON-HODGKIN^S LYMPHOMA
     Route: 048
     Dates: start: 20170817, end: 20170820

REACTIONS (6)
  - Neutropenia [Unknown]
  - Cardiac failure [Fatal]
  - Radiation pneumonitis [Fatal]
  - Depressed level of consciousness [Unknown]
  - Aspergillus infection [Fatal]
  - Lower respiratory tract infection fungal [Fatal]

NARRATIVE: CASE EVENT DATE: 201708
